FAERS Safety Report 9538332 (Version 1)
Quarter: 2013Q3

REPORT INFORMATION
  Report Type: Spontaneous
  Country: US (occurrence: US)
  Receive Date: 20130920
  Receipt Date: 20130920
  Transmission Date: 20140515
  Serious: No
  Sender: FDA-Public Use
  Company Number: US-BAYER-2013-109656

PATIENT
  Sex: Female
  Weight: 64.4 kg

DRUGS (6)
  1. BETASERON [Suspect]
     Indication: MULTIPLE SCLEROSIS
     Dosage: 0.25 MG, QOD
     Route: 058
     Dates: end: 201307
  2. DETROL [Concomitant]
     Dosage: 1 MG, UNK
  3. ZOLPIDEM [Concomitant]
     Dosage: 5 MG, UNK
  4. MEDROXYPROGESTERONE ACETATE [Concomitant]
     Dosage: 2.5 MG, UNK
  5. MIRALAX [Concomitant]
     Dosage: 3350 NF, UNK
  6. ASPIRIN [Concomitant]
     Dosage: 81 MG, UNK

REACTIONS (2)
  - Feeling hot [Recovering/Resolving]
  - Drug ineffective [Recovering/Resolving]
